FAERS Safety Report 18301728 (Version 2)
Quarter: 2022Q4

REPORT INFORMATION
  Report Type: Spontaneous
  Country: DE (occurrence: DE)
  Receive Date: 20200923
  Receipt Date: 20221025
  Transmission Date: 20230113
  Serious: Yes (Hospitalization, Other)
  Sender: FDA-Public Use
  Company Number: DE-ADRED-05473-01

PATIENT
  Age: 84 Year
  Sex: Female
  Weight: 85 kg

DRUGS (8)
  1. INSULIN GLARGINE [Suspect]
     Active Substance: INSULIN GLARGINE
     Dosage: 1 IU, 0-0-0-6, AMPOULES
     Route: 058
  2. SITAGLIPTIN [Suspect]
     Active Substance: SITAGLIPTIN
     Dosage: 25 MG, 1-0-0-0, TABLETS
     Route: 048
  3. GLIMEPIRIDE [Suspect]
     Active Substance: GLIMEPIRIDE
     Dosage: 2MG, 1-0-0.5-0, TABLETS
     Route: 048
  4. RIVAROXABAN [Suspect]
     Active Substance: RIVAROXABAN
     Dosage: 15 MG, 1-0-0-0, TABLETS
     Route: 048
  5. TELMISARTAN [Concomitant]
     Active Substance: TELMISARTAN
     Dosage: 80 MG, 1-0-0-0, TABLET
     Route: 048
  6. TORSEMIDE [Concomitant]
     Active Substance: TORSEMIDE
     Dosage: 10 MG, 2-2-0-0, TABLET
     Route: 048
  7. SIMVASTATIN [Concomitant]
     Active Substance: SIMVASTATIN
     Dosage: 40 MG, 0-0-1-0, TABLETS
     Route: 048
  8. BISOPROLOL [Concomitant]
     Active Substance: BISOPROLOL
     Dosage: 5 MG, 1-0-0-0, TABLETS
     Route: 048

REACTIONS (9)
  - Fatigue [Unknown]
  - Cough [Unknown]
  - Dyspnoea [Unknown]
  - Tachypnoea [Unknown]
  - Pyrexia [Unknown]
  - General physical health deterioration [Unknown]
  - Chronic obstructive pulmonary disease [Unknown]
  - Haematochezia [Unknown]
  - Infection [Unknown]
